FAERS Safety Report 8622613-3 (Version None)
Quarter: 2012Q3

REPORT INFORMATION
  Report Type: 
  Country: None (occurrence: None)
  Receive Date: 20120813
  Receipt Date: 20120717
  Transmission Date: 20120928
  Serious: Yes (Other)
  Sender: FDA-Public Use
  Company Number: 2012033023

PATIENT
  Age: 81 Year
  Sex: Female

DRUGS (1)
  1. IMMUNE GLOBULIN INTRAVENOUS (HUMAN) [Suspect]
     Indication: INTERSTITIAL GRANULOMATOUS DERMATITIS

REACTIONS (4)
  - OFF LABEL USE [None]
  - PRURITUS [None]
  - RENAL FAILURE [None]
  - SKIN LESION [None]
